FAERS Safety Report 19552733 (Version 4)
Quarter: 2022Q1

REPORT INFORMATION
  Report Type: Report from Study
  Country: US (occurrence: US)
  Receive Date: 20210715
  Receipt Date: 20220127
  Transmission Date: 20220423
  Serious: No
  Sender: FDA-Public Use
  Company Number: NVSC2021US150929

PATIENT
  Sex: Male

DRUGS (2)
  1. COSENTYX [Suspect]
     Active Substance: SECUKINUMAB
     Indication: Psoriatic arthropathy
     Dosage: UNK, ON THE SKIN
     Route: 003
  2. COSENTYX [Suspect]
     Active Substance: SECUKINUMAB
     Dosage: UNK, QMO
     Route: 058

REACTIONS (10)
  - Arthralgia [Unknown]
  - Injection site pain [Recovering/Resolving]
  - Injection site erythema [Recovering/Resolving]
  - Incorrect route of product administration [Unknown]
  - COVID-19 [Recovering/Resolving]
  - Sinus congestion [Unknown]
  - Influenza [Unknown]
  - Cough [Unknown]
  - Asthma [Unknown]
  - Sinusitis [Unknown]
